FAERS Safety Report 8452091-9 (Version None)
Quarter: 2012Q2

REPORT INFORMATION
  Report Type: 
  Country: None (occurrence: None)
  Receive Date: 20120620
  Receipt Date: 20120614
  Transmission Date: 20120825
  Serious: Yes (Hospitalization)
  Sender: FDA-Public Use
  Company Number: US-GLAXOSMITHKLINE-A0887214A

PATIENT
  Age: 59 Year
  Sex: Female
  Weight: 90 kg

DRUGS (4)
  1. ADVAIR DISKUS 100/50 [Concomitant]
  2. COMBIVENT [Concomitant]
  3. METFORMIN HCL [Concomitant]
     Dates: end: 20090601
  4. AVANDIA [Suspect]
     Indication: DIABETES MELLITUS
     Dosage: 4MG TWICE PER DAY
     Route: 048
     Dates: start: 20041116, end: 20090601

REACTIONS (4)
  - MYOCARDIAL INFARCTION [None]
  - ACUTE CORONARY SYNDROME [None]
  - CARDIAC FAILURE CONGESTIVE [None]
  - CORONARY ARTERY DISEASE [None]
